FAERS Safety Report 5357048-2 (Version None)
Quarter: 2007Q2

REPORT INFORMATION
  Report Type: 
  Country: None (occurrence: None)
  Receive Date: 20070614
  Receipt Date: 20070605
  Transmission Date: 20071010
  Serious: Yes (Hospitalization)
  Sender: FDA-Public Use
  Company Number: US-GENENTECH-205025

PATIENT
  Sex: Female
  Weight: 19.6 kg

DRUGS (3)
  1. SOMATROPIN [Suspect]
     Indication: GROWTH HORMONE DEFICIENCY
     Dosage: .8 MG, QD
     Route: 058
     Dates: start: 20031030, end: 20040204
  2. SOMATROPIN [Suspect]
     Dosage: .4 MG, QD
     Route: 058
     Dates: start: 20040212
  3. SOMATROPIN [Suspect]
     Dosage: 0.3 MG/K/W, UNK

REACTIONS (1)
  - THYMUS ENLARGEMENT [None]
